FAERS Safety Report 8311246 (Version 3)
Quarter: 2013Q3

REPORT INFORMATION
  Report Type: Report from Study
  Country: US (occurrence: US)
  Receive Date: 20111227
  Receipt Date: 20130923
  Transmission Date: 20140515
  Serious: Yes (Hospitalization, Other)
  Sender: FDA-Public Use
  Company Number: US-UCBSA-047410

PATIENT
  Age: 44 Year
  Sex: Female
  Weight: 44.9 kg

DRUGS (51)
  1. CIMZIA [Suspect]
     Indication: CROHN^S DISEASE
     Route: 058
     Dates: start: 20110328
  2. TOTAL PARENTERAL NUTRITION [Concomitant]
  3. ACETAMINOPHEN [Concomitant]
     Route: 054
     Dates: start: 20110921, end: 20111021
  4. ACETAMINOPHEN [Concomitant]
     Dosage: 1000 MG. Q8H4
     Route: 042
     Dates: start: 20110926, end: 20110927
  5. ACETAMINOPHEN [Concomitant]
     Route: 048
     Dates: start: 20110921, end: 20111021
  6. ACETAMINOPHEN [Concomitant]
     Route: 042
     Dates: start: 20110926, end: 20110927
  7. ACETAMINOPHEN [Concomitant]
     Route: 042
     Dates: start: 20110929, end: 20111001
  8. ACETAMINOPHEN [Concomitant]
     Route: 048
     Dates: start: 20110930, end: 20110930
  9. ACETAMINOPHEN [Concomitant]
     Route: 042
     Dates: start: 20110924, end: 20110927
  10. ACETAMINOPHEN [Concomitant]
     Route: 042
     Dates: start: 20110922, end: 20110924
  11. ACETAMINOPHEN [Concomitant]
     Route: 042
     Dates: start: 20110924, end: 20110924
  12. ACETAMINOPHEN [Concomitant]
     Route: 042
     Dates: start: 20110924, end: 20110925
  13. ALVIMOPAN [Concomitant]
     Route: 048
     Dates: start: 20110921
  14. ERGOCALCIFEROL [Concomitant]
     Dosage: 1 CAPSULE
     Route: 048
     Dates: start: 20110921, end: 20110921
  15. ERTAPENEM [Concomitant]
     Dosage: 50 ML
     Route: 042
     Dates: start: 20110921
  16. FAMOTIDINE [Concomitant]
     Dosage: 3 DAYS ONLY
     Route: 042
     Dates: start: 20110921, end: 20110924
  17. GENTAMICIN SULFATE [Concomitant]
     Dates: start: 20110921
  18. GLYCOPYRROLATE [Concomitant]
     Dosage: G-TUBE
     Dates: start: 20110921
  19. HEPARIN SODIUM [Concomitant]
     Dosage: 5000 UNITS Q12H10
     Route: 058
     Dates: start: 20110921
  20. HYDROMORPHONE HCL [Concomitant]
     Dosage: 0.5-1 MG
     Route: 042
     Dates: start: 20110921
  21. HYOSCYAMINE SULFATE [Concomitant]
     Dosage: ONCE AT BED TIME
     Route: 048
     Dates: start: 20110921, end: 20110921
  22. KETOROLAC TROMETHAMINE [Concomitant]
     Route: 030
     Dates: start: 20110921, end: 20110921
  23. KETOROLAC TROMETHAMINE [Concomitant]
     Route: 042
     Dates: start: 20110922, end: 20110929
  24. LIDOCAINE [Concomitant]
     Dates: start: 20110921, end: 20110925
  25. LIDOCAINE [Concomitant]
     Dosage: 5 ML
     Dates: start: 20110926, end: 20110926
  26. MAGNESIUM SULFATE [Concomitant]
     Route: 042
     Dates: start: 20110921, end: 20110921
  27. MAGNESIUM SULFATE [Concomitant]
     Route: 042
     Dates: start: 20110921, end: 20110923
  28. MAGNESIUM SULFATE [Concomitant]
     Dates: start: 20110925, end: 20110925
  29. METOCLOPRAMIDE HCL [Concomitant]
     Route: 042
     Dates: start: 20110921, end: 20110923
  30. MIDAZOLAM HCL [Concomitant]
     Route: 042
     Dates: start: 20110921
  31. MORPHINE SULFATE [Concomitant]
     Route: 042
     Dates: start: 20110921
  32. NALOXONE HCL [Concomitant]
     Route: 042
     Dates: start: 20110921, end: 20111021
  33. NEOSTIGMINE [Concomitant]
     Route: 030
     Dates: start: 20110921
  34. ONDASETRON HCL [Concomitant]
     Route: 042
     Dates: start: 20110921
  35. NON FORMULATORY ITEMS [Concomitant]
     Route: 042
     Dates: start: 20110921, end: 20111021
  36. PANTOPRAZOLE [Concomitant]
     Route: 042
     Dates: start: 20110924
  37. PHENYLEPHRINE [Concomitant]
     Route: 042
     Dates: start: 20110921
  38. PROCHLORPERAZINE EDISYLATE [Concomitant]
     Dosage: 5-10 MG, ONCE IN 6 HOURS
     Route: 042
     Dates: start: 20110921, end: 20110921
  39. PROMETHAZINE HCL [Concomitant]
     Route: 042
     Dates: start: 20110921
  40. PROPOFOL [Concomitant]
     Route: 042
     Dates: start: 20110921
  41. RINGER^S LACTATE [Concomitant]
     Route: 042
     Dates: start: 20110921
  42. ROCURONIUM BROMIDE [Concomitant]
     Route: 042
     Dates: start: 20110921
  43. DEXTROSE SALINE [Concomitant]
     Route: 042
     Dates: start: 20110922, end: 20110922
  44. SODIUM CHLORIDE [Concomitant]
     Route: 042
     Dates: start: 20110921
  45. ZALEPLON [Concomitant]
     Dosage: ONCE AT NIGHT
     Route: 048
     Dates: start: 20110924, end: 20111024
  46. DIPHENHYDRAMINE HCL [Concomitant]
     Route: 048
     Dates: start: 20110921, end: 20110921
  47. DIPHENHYDRAMINE HCL [Concomitant]
     Route: 048
     Dates: start: 20110921, end: 20110921
  48. DIPHENHYDRAMINE HCL [Concomitant]
     Route: 042
     Dates: start: 20110924, end: 20110929
  49. FENTANYL CITRATE [Concomitant]
     Route: 042
     Dates: start: 20110921
  50. OXYCODONE HCL [Concomitant]
     Route: 048
     Dates: start: 20110924, end: 20111002
  51. SALINE [Concomitant]
     Route: 042
     Dates: start: 20110921, end: 20111021

REACTIONS (1)
  - Haemorrhage subcutaneous [Recovered/Resolved]
